FAERS Safety Report 8258728-1 (Version None)
Quarter: 2012Q2

REPORT INFORMATION
  Report Type: 
  Country: None (occurrence: None)
  Receive Date: 20120404
  Receipt Date: 20120404
  Transmission Date: 20120825
  Serious: Yes (Disabling)
  Sender: FDA-Public Use
  Company Number: None

PATIENT
  Age: 69 Year
  Sex: Female
  Weight: 83.914 kg

DRUGS (1)
  1. NITROFURANTOIN (MONOHYDRATE/MACROCRYSTALS) [Suspect]
     Indication: URINARY TRACT INFECTION
     Dosage: ONE CAPSUL
     Dates: start: 20111107, end: 20111120

REACTIONS (13)
  - VISUAL IMPAIRMENT [None]
  - RASH [None]
  - POISONING [None]
  - CHEST PAIN [None]
  - IMPAIRED WORK ABILITY [None]
  - ARTHRALGIA [None]
  - FATIGUE [None]
  - DEPRESSED MOOD [None]
  - QUALITY OF LIFE DECREASED [None]
  - MYALGIA [None]
  - FEELING ABNORMAL [None]
  - PRURITUS [None]
  - SWELLING [None]
